FAERS Safety Report 17377133 (Version 1)
Quarter: 2020Q1

REPORT INFORMATION
  Report Type: Spontaneous
  Country: SA (occurrence: SA)
  Receive Date: 20200206
  Receipt Date: 20200206
  Transmission Date: 20200409
  Serious: Yes (Hospitalization, Other)
  Sender: FDA-Public Use
  Company Number: SA-SCIEGEN PHARMACEUTICALS INC-2020SCILIT00031

PATIENT
  Age: 65 Year
  Sex: Male

DRUGS (3)
  1. LORAZEPAM. [Interacting]
     Active Substance: LORAZEPAM
  2. PREGABALIN CAPSULES [Suspect]
     Active Substance: PREGABALIN
  3. VALPROATE [Interacting]
     Active Substance: VALPROIC ACID

REACTIONS (1)
  - Petit mal epilepsy [Recovered/Resolved]
